FAERS Safety Report 4932880-5 (Version None)
Quarter: 2006Q1

REPORT INFORMATION
  Report Type: 
  Country: None (occurrence: None)
  Receive Date: 20060306
  Receipt Date: 20060223
  Transmission Date: 20060701
  Serious: Yes (Other)
  Sender: FDA-Public Use
  Company Number: DE-JNJFOC-20060200704

PATIENT
  Age: 85 Year
  Sex: Male

DRUGS (6)
  1. DURAGESIC-100 [Suspect]
     Indication: PAIN
     Route: 062
  2. BRONCHORETARD [Concomitant]
     Route: 048
  3. PREDNISOLONE [Concomitant]
     Route: 065
  4. SYMBICORT [Concomitant]
     Route: 065
  5. SYMBICORT [Concomitant]
     Route: 065
  6. NEXIUM [Concomitant]
     Route: 065

REACTIONS (3)
  - GAMMA-GLUTAMYLTRANSFERASE INCREASED [None]
  - SUBILEUS [None]
  - VOMITING [None]
